FAERS Safety Report 23063501 (Version 1)
Quarter: 2023Q4

REPORT INFORMATION
  Report Type: Spontaneous
  Country: None (occurrence: CN)
  Receive Date: 20231013
  Receipt Date: 20231013
  Transmission Date: 20240110
  Serious: Yes (Hospitalization)
  Sender: FDA-Public Use
  Company Number: CN-Jiangsu Hengrui Medicine Co., Ltd.-2147068

PATIENT
  Age: 51 Year
  Sex: Female

DRUGS (3)
  1. DOCETAXEL [Suspect]
     Active Substance: DOCETAXEL
     Indication: Breast cancer
     Route: 041
     Dates: start: 20230911, end: 20230911
  2. TRASTUZUMAB [Suspect]
     Active Substance: TRASTUZUMAB
     Route: 041
     Dates: start: 20230911, end: 20230911
  3. PERTUZUMAB [Suspect]
     Active Substance: PERTUZUMAB
     Route: 041
     Dates: start: 20230911, end: 20230911

REACTIONS (1)
  - Musculoskeletal pain [Recovering/Resolving]

NARRATIVE: CASE EVENT DATE: 20230911
